FAERS Safety Report 7865565-6 (Version None)
Quarter: 2011Q4

REPORT INFORMATION
  Report Type: 
  Country: None (occurrence: None)
  Receive Date: 20111028
  Receipt Date: 20110117
  Transmission Date: 20120403
  Serious: No
  Sender: FDA-Public Use
  Company Number: US-GLAXOSMITHKLINE-A0906517A

PATIENT
  Age: 59 Year
  Sex: Female

DRUGS (4)
  1. VENTOLIN HFA [Concomitant]
  2. ADVAIR DISKUS 100/50 [Suspect]
     Indication: BRONCHIAL DISORDER
     Dosage: 1PUFF SINGLE DOSE
     Route: 055
     Dates: start: 20110113, end: 20110113
  3. QVAR 40 [Concomitant]
  4. LISINOPRIL [Concomitant]

REACTIONS (5)
  - NERVOUSNESS [None]
  - PANIC ATTACK [None]
  - HYPERTENSION [None]
  - HEART RATE INCREASED [None]
  - FEELING ABNORMAL [None]
